FAERS Safety Report 4373293-7 (Version None)
Quarter: 2004Q2

REPORT INFORMATION
  Report Type: 
  Country: None (occurrence: None)
  Receive Date: 20040603
  Receipt Date: 20040514
  Transmission Date: 20050107
  Serious: Yes (Hospitalization)
  Sender: FDA-Public Use
  Company Number: USA040567563

PATIENT
  Age: 79 Year
  Sex: Female
  Weight: 77 kg

DRUGS (1)
  1. HUMALOG MIX 75/25 [Suspect]
     Dosage: 85 U DAY
     Dates: start: 19950101

REACTIONS (3)
  - FALL [None]
  - FOOT FRACTURE [None]
  - HAND FRACTURE [None]
